FAERS Safety Report 14848278 (Version 1)
Quarter: 2018Q2

REPORT INFORMATION
  Report Type: Spontaneous
  Country: DE (occurrence: DE)
  Receive Date: 20180504
  Receipt Date: 20180504
  Transmission Date: 20180711
  Serious: Yes (Hospitalization)
  Sender: FDA-Public Use
  Company Number: DE-SA-2018SA115588

PATIENT
  Age: 78 Year
  Sex: Male

DRUGS (11)
  1. MAGNESIUM [Concomitant]
     Active Substance: MAGNESIUM
     Route: 065
  2. PANTOPRAZOL [Concomitant]
     Active Substance: PANTOPRAZOLE SODIUM
     Route: 065
  3. AMITRIPTYLIN [Concomitant]
     Active Substance: AMITRIPTYLINE
     Route: 065
  4. TRENANTONE [Suspect]
     Active Substance: LEUPROLIDE ACETATE
     Route: 065
  5. PREDNISOLON [Concomitant]
     Active Substance: PREDNISOLONE
     Route: 065
  6. METOPROLOL. [Concomitant]
     Active Substance: METOPROLOL
     Route: 065
  7. DOCETAXEL. [Suspect]
     Active Substance: DOCETAXEL
     Dosage: NK
     Route: 065
  8. TORASEMID [Concomitant]
     Active Substance: TORSEMIDE
     Route: 065
  9. MACROGOL [Concomitant]
     Active Substance: POLYETHYLENE GLYCOLS
     Dosage: 1-0-1-0
  10. ZOLEDRONIC ACID [Suspect]
     Active Substance: ZOLEDRONIC ACID
     Dosage: NK
     Route: 065
  11. HYDROMORPHON [Concomitant]
     Active Substance: HYDROMORPHONE
     Route: 065

REACTIONS (4)
  - Dehydration [Unknown]
  - Circulatory collapse [Unknown]
  - Pyrexia [Unknown]
  - Chills [Unknown]
